FAERS Safety Report 7777081-0 (Version None)
Quarter: 2011Q3

REPORT INFORMATION
  Report Type: 
  Country: None (occurrence: None)
  Receive Date: 20110923
  Receipt Date: 20110923
  Transmission Date: 20111222
  Serious: No
  Sender: FDA-Public Use
  Company Number: None

PATIENT
  Sex: Female

DRUGS (3)
  1. DOXYCYCLINE [Suspect]
     Indication: ROSACEA
  2. TETRACYCLINE [Suspect]
     Indication: ROSACEA
  3. MINOCYCLINE HCL [Suspect]
     Indication: ROSACEA

REACTIONS (1)
  - VULVOVAGINAL MYCOTIC INFECTION [None]
